FAERS Safety Report 9906521 (Version 3)
Quarter: 2014Q2

REPORT INFORMATION
  Report Type: Spontaneous
  Country: JP (occurrence: JP)
  Receive Date: 20140218
  Receipt Date: 20140612
  Transmission Date: 20141212
  Serious: Yes (Hospitalization, Other)
  Sender: FDA-Public Use
  Company Number: JP-EISAI INC-E2090-03116-SPO-JP

PATIENT
  Age: 14 Year
  Sex: Female

DRUGS (4)
  1. EXCEGRAN [Suspect]
     Indication: EPILEPSY
     Route: 048
     Dates: start: 20130107, end: 20130123
  2. DEPAKENE-R (SODIUM VALPROATE) [Concomitant]
     Indication: EPILEPSY
     Route: 048
     Dates: start: 20091205, end: 20100726
  3. DEPAKENE-R (SODIUM VALPROATE) [Concomitant]
     Route: 048
     Dates: start: 20100727, end: 20110308
  4. DEPAKENE-R (SODIUM VALPROATE) [Concomitant]
     Route: 048
     Dates: start: 20110309, end: 20130326

REACTIONS (3)
  - Drug-induced liver injury [Recovered/Resolved]
  - Drug eruption [Recovering/Resolving]
  - Leukopenia [Recovered/Resolved]
